FAERS Safety Report 5934029-9 (Version None)
Quarter: 2008Q4

REPORT INFORMATION
  Report Type: 
  Country: None (occurrence: None)
  Receive Date: 20081024
  Receipt Date: 20081020
  Transmission Date: 20090506
  Serious: Yes (Other)
  Sender: FDA-Public Use
  Company Number: UKRP0002496

PATIENT
  Age: 56 Year
  Sex: Female

DRUGS (1)
  1. TAMOXIFEN CITRATE [Suspect]
     Indication: ANTIOESTROGEN THERAPY
     Dosage: 190-250 MG/DAY
     Dates: start: 19920101, end: 19950101

REACTIONS (5)
  - CORNEAL DISORDER [None]
  - MACULAR DEGENERATION [None]
  - PIGMENTATION DISORDER [None]
  - RETINAL DEPOSITS [None]
  - VISUAL ACUITY REDUCED [None]
